FAERS Safety Report 21794824 (Version 1)
Quarter: 2022Q4

REPORT INFORMATION
  Report Type: Report from Study
  Country: BR (occurrence: BR)
  Receive Date: 20221229
  Receipt Date: 20221229
  Transmission Date: 20230113
  Serious: Yes (Other)
  Sender: FDA-Public Use
  Company Number: BR-002147023-NVSC2022BR298936

PATIENT
  Age: 88 Year
  Sex: Female

DRUGS (1)
  1. DIOVAN HCT [Suspect]
     Active Substance: HYDROCHLOROTHIAZIDE\VALSARTAN
     Indication: Product used for unknown indication
     Dosage: (30/25) AND 320 MG AND 25 MG
     Route: 048
     Dates: end: 202209

REACTIONS (3)
  - Myocardial infarction [Recovered/Resolved with Sequelae]
  - Cardiomegaly [Recovered/Resolved with Sequelae]
  - Concomitant disease aggravated [Recovered/Resolved with Sequelae]
